FAERS Safety Report 15483250 (Version 1)
Quarter: 2018Q4

REPORT INFORMATION
  Report Type: Spontaneous
  Country: US (occurrence: US)
  Receive Date: 20181010
  Receipt Date: 20181010
  Transmission Date: 20190205
  Serious: Yes (Death)
  Sender: FDA-Public Use
  Company Number: None

PATIENT
  Age: 71 Year
  Sex: Male

DRUGS (16)
  1. RANITIDINE TAB 150MG [Concomitant]
  2. TIZANIDINE TAB 4MG [Concomitant]
  3. EZETIMIBE TAB 10MG [Concomitant]
  4. NIFEDIPINE TAB 30MG ER [Concomitant]
  5. ONDANSETRON TAB 4MG [Concomitant]
  6. ESCITALOPRAM [Concomitant]
     Active Substance: ESCITALOPRAM OXALATE
  7. DOFETILIDE. [Suspect]
     Active Substance: DOFETILIDE
     Indication: ATRIAL FIBRILLATION
     Route: 048
  8. FUROSEMIDE TAB 20MG [Concomitant]
  9. ATORVASTATIN TAB 40MG [Concomitant]
  10. ATENOLOL TAB 25MG [Concomitant]
  11. POLYETH GLYC POW 3350 NF [Concomitant]
  12. FINASTERIDE TAB 5MG [Concomitant]
  13. PROAIR HFA [Concomitant]
     Active Substance: ALBUTEROL SULFATE
  14. BUSPIRONE [Concomitant]
     Active Substance: BUSPIRONE HYDROCHLORIDE
  15. XARELTO TAB 20MG [Concomitant]
  16. IRBESARTAN TAB 300MG [Concomitant]

REACTIONS (1)
  - Death [None]

NARRATIVE: CASE EVENT DATE: 20181001
